FAERS Safety Report 5654638-4 (Version None)
Quarter: 2008Q1

REPORT INFORMATION
  Report Type: 
  Country: None (occurrence: None)
  Receive Date: 20080219
  Receipt Date: 20071116
  Transmission Date: 20080703
  Serious: No
  Sender: FDA-Public Use
  Company Number: WAES 0711USA03592

PATIENT
  Age: 74 Year
  Sex: Male

DRUGS (4)
  1. JANUVIA [Suspect]
     Indication: TYPE 2 DIABETES MELLITUS
     Dosage: 100 MG/DAILY/PO
     Route: 048
     Dates: start: 20071012
  2. LIPITOR [Concomitant]
  3. GLYBURIDE [Concomitant]
  4. METHOTREXATE [Concomitant]

REACTIONS (1)
  - BLOOD GLUCOSE INCREASED [None]
